FAERS Safety Report 18098967 (Version 1)
Quarter: 2020Q3

REPORT INFORMATION
  Report Type: Report from Study
  Country: IN (occurrence: IN)
  Receive Date: 20200731
  Receipt Date: 20200731
  Transmission Date: 20201103
  Serious: Yes (Death, Hospitalization)
  Sender: FDA-Public Use
  Company Number: IN-BIOGEN-2020BI00904135

PATIENT
  Age: 10 Month
  Sex: Male
  Weight: 8 kg

DRUGS (1)
  1. SPINRAZA [Suspect]
     Active Substance: NUSINERSEN
     Indication: SPINAL MUSCULAR ATROPHY
     Dosage: FIRST THREE LOADING DOSES AT 14 DAYS INTERVAL; THE 4TH DOSE 30 DAYS AFTER THE 3RD DOSE
     Route: 065
     Dates: start: 20200129, end: 20200327

REACTIONS (1)
  - Sudden infant death syndrome [Fatal]

NARRATIVE: CASE EVENT DATE: 20200607
